FAERS Safety Report 7511112-8 (Version None)
Quarter: 2011Q2

REPORT INFORMATION
  Report Type: 
  Country: None (occurrence: None)
  Receive Date: 20110531
  Receipt Date: 20110516
  Transmission Date: 20111010
  Serious: Yes (Other)
  Sender: FDA-Public Use
  Company Number: KR-JNJFOC-20110409565

PATIENT
  Age: 72 Year
  Sex: Male

DRUGS (1)
  1. ULTRACET [Suspect]
     Indication: NEURALGIA
     Dosage: HALF A TABLET (37.5 MG TRAMADOL AND 325 MG ACETAMINOPHEN)
     Route: 048

REACTIONS (2)
  - WRONG TECHNIQUE IN DRUG USAGE PROCESS [None]
  - BLOOD GLUCOSE INCREASED [None]
